FAERS Safety Report 5420225-6 (Version None)
Quarter: 2007Q3

REPORT INFORMATION
  Report Type: 
  Country: None (occurrence: None)
  Receive Date: 20070815
  Receipt Date: 20070806
  Transmission Date: 20080115
  Serious: Yes (Other)
  Sender: FDA-Public Use
  Company Number: 17188

PATIENT
  Age: 4 Year
  Sex: Male

DRUGS (5)
  1. METHOTREXATE [Suspect]
     Indication: BURKITT'S LYMPHOMA
  2. VINCRISTINE [Suspect]
     Indication: BURKITT'S LYMPHOMA
  3. PREDNISONE TAB [Suspect]
     Indication: BURKITT'S LYMPHOMA
  4. CYCLOPHOSPHAMIDE [Suspect]
     Indication: BURKITT'S LYMPHOMA
  5. DOXORUBICIN [Suspect]
     Indication: BURKITT'S LYMPHOMA

REACTIONS (2)
  - MEDIASTINAL MASS [None]
  - THYMUS ENLARGEMENT [None]
